FAERS Safety Report 6274605-X (Version None)
Quarter: 2009Q3

REPORT INFORMATION
  Report Type: 
  Country: None (occurrence: None)
  Receive Date: 20090717
  Receipt Date: 20090708
  Transmission Date: 20100115
  Serious: Yes (Death)
  Sender: FDA-Public Use
  Company Number: 2009AL000465

PATIENT
  Age: 42 Year
  Sex: Male
  Weight: 118.3888 kg

DRUGS (18)
  1. DIGOXIN [Suspect]
     Dosage: 0.25MG, DAILY, PO
     Route: 048
  2. COREG [Concomitant]
  3. FUROSEMIDE [Concomitant]
  4. POTASSIUM CHLORIDE [Concomitant]
  5. ALTACE [Concomitant]
  6. LONOX [Concomitant]
  7. CIPRO [Concomitant]
  8. INSULIN [Concomitant]
  9. NESIRITIDE [Concomitant]
  10. CARVEDILOL [Concomitant]
  11. RAMIPRIL [Concomitant]
  12. ZOLPIDEM [Concomitant]
  13. INSPIRA [Concomitant]
  14. EPLERONONE [Concomitant]
  15. SPIRONOLACTONE [Concomitant]
  16. NATRICOR [Concomitant]
  17. ENOXAPARIN SODIUM [Concomitant]
  18. ASPIRIN [Concomitant]

REACTIONS (8)
  - ANXIETY [None]
  - ECONOMIC PROBLEM [None]
  - EMOTIONAL DISORDER [None]
  - FEAR [None]
  - INJURY [None]
  - PAIN [None]
  - SOCIAL AVOIDANT BEHAVIOUR [None]
  - UNEVALUABLE EVENT [None]
